FAERS Safety Report 10141820 (Version 1)
Quarter: 2014Q2

REPORT INFORMATION
  Report Type: Spontaneous
  Country: US (occurrence: US)
  Receive Date: 20140429
  Receipt Date: 20140429
  Transmission Date: 20141212
  Serious: Yes (Hospitalization)
  Sender: FDA-Public Use
  Company Number: US-INCYTE CORPORATION-2014IN001122

PATIENT
  Age: 54 Year
  Sex: Female

DRUGS (7)
  1. JAKAFI [Suspect]
     Indication: MYELOFIBROSIS
     Dosage: 10 MG, BID
     Route: 048
     Dates: start: 20120113, end: 20140421
  2. LEXAPRO [Concomitant]
  3. SYNTHROID [Concomitant]
  4. AMILORIDE [Concomitant]
  5. MAGNESIUM [Concomitant]
  6. FENTANYL                           /00174602/ [Concomitant]
  7. DILAUDID [Concomitant]

REACTIONS (3)
  - Hospitalisation [Unknown]
  - Abdominal pain [Unknown]
  - Drug dose omission [Unknown]
